FAERS Safety Report 5749250-2 (Version None)
Quarter: 2008Q2

REPORT INFORMATION
  Report Type: 
  Country: None (occurrence: None)
  Receive Date: 20080521
  Receipt Date: 20080521
  Transmission Date: 20081010
  Serious: No
  Sender: FDA-Public Use
  Company Number: None

PATIENT
  Sex: Female

DRUGS (6)
  1. REVLIMID [Suspect]
     Indication: MULTIPLE MYELOMA
     Dosage: 25MG DAILY X21D/28D PO
     Route: 048
     Dates: start: 20070917, end: 20071207
  2. REVLIMID [Suspect]
     Indication: MULTIPLE MYELOMA
     Dosage: 20MG -TWO 10MG- DAILY X21D/28D PO
     Route: 048
     Dates: start: 20071214, end: 20080229
  3. DEXAMETHASONE TAB [Concomitant]
  4. NORCO [Concomitant]
  5. PROCRIT [Concomitant]
  6. PAMIDRONATE DISODIUM [Concomitant]

REACTIONS (4)
  - BONE MARROW FAILURE [None]
  - CONSTIPATION [None]
  - DYSPNOEA EXERTIONAL [None]
  - MALAISE [None]
